FAERS Safety Report 12302203 (Version 2)
Quarter: 2016Q2

REPORT INFORMATION
  Report Type: Report from Study
  Country: AT (occurrence: AT)
  Receive Date: 20160425
  Receipt Date: 20160506
  Transmission Date: 20160815
  Serious: Yes (Hospitalization)
  Sender: FDA-Public Use
  Company Number: AT-BRISTOL-MYERS SQUIBB COMPANY-BMS-2015-093816

PATIENT
  Age: 42 Year
  Sex: Male
  Weight: 94 kg

DRUGS (11)
  1. NIVOLUMAB [Suspect]
     Active Substance: NIVOLUMAB
     Dosage: 285 MG, UNK
     Route: 065
     Dates: start: 20151102, end: 20151102
  2. NIVOLUMAB [Suspect]
     Active Substance: NIVOLUMAB
     Indication: MALIGNANT MELANOMA
     Dosage: 282 MG, UNK
     Route: 042
     Dates: start: 20150615
  3. NIVOLUMAB [Suspect]
     Active Substance: NIVOLUMAB
     Dosage: 285 MG, UNK
     Route: 065
     Dates: start: 20150810, end: 20150810
  4. NIVOLUMAB [Suspect]
     Active Substance: NIVOLUMAB
     Dosage: 285 MG, UNK
     Route: 065
     Dates: start: 20150921, end: 20150921
  5. NIVOLUMAB [Suspect]
     Active Substance: NIVOLUMAB
     Dosage: 285 MG, UNK
     Route: 065
     Dates: start: 20150727, end: 20150727
  6. NIVOLUMAB [Suspect]
     Active Substance: NIVOLUMAB
     Dosage: 285 MG, UNK
     Route: 065
     Dates: start: 20150824, end: 20150824
  7. NIVOLUMAB [Suspect]
     Active Substance: NIVOLUMAB
     Dosage: 285 MG, UNK
     Route: 065
     Dates: start: 20151019, end: 20151019
  8. NIVOLUMAB [Suspect]
     Active Substance: NIVOLUMAB
     Dosage: 282 MG, UNK
     Route: 065
     Dates: start: 20150713, end: 20150713
  9. NIVOLUMAB [Suspect]
     Active Substance: NIVOLUMAB
     Dosage: 282 MG, UNK
     Route: 065
     Dates: start: 20150629, end: 20150629
  10. NIVOLUMAB [Suspect]
     Active Substance: NIVOLUMAB
     Dosage: 285 MG, UNK
     Route: 065
     Dates: start: 20151005, end: 20151005
  11. NIVOLUMAB [Suspect]
     Active Substance: NIVOLUMAB
     Dosage: 285 MG, UNK
     Route: 065
     Dates: start: 20150907, end: 20150907

REACTIONS (1)
  - Troponin T increased [Recovered/Resolved]

NARRATIVE: CASE EVENT DATE: 20151102
